FAERS Safety Report 8237465-3 (Version None)
Quarter: 2012Q1

REPORT INFORMATION
  Report Type: 
  Country: None (occurrence: None)
  Receive Date: 20120327
  Receipt Date: 20120315
  Transmission Date: 20120608
  Serious: Yes (Other)
  Sender: FDA-Public Use
  Company Number: BR-AMGEN-BRASP2012017841

PATIENT
  Age: 59 Year
  Sex: Female
  Weight: 82 kg

DRUGS (6)
  1. ENBREL [Suspect]
     Indication: RHEUMATOID ARTHRITIS
     Dosage: 50 MG, WEEKLY
     Route: 058
     Dates: start: 20111001
  2. ALPRAZOLAM [Concomitant]
     Indication: RELAXATION THERAPY
     Dosage: UNK
  3. LOSARTAN POTASSIUM [Concomitant]
     Dosage: UNK
  4. PREDNISONE TAB [Concomitant]
     Dosage: UNK
     Dates: start: 19870101
  5. PENSOLE V [Concomitant]
     Indication: HYPERTENSION
     Dosage: UNK
  6. LEVOTHYROXINE SODIUM [Concomitant]
     Indication: HYPOTHYROIDISM
     Dosage: UNK
     Dates: start: 19920101

REACTIONS (4)
  - DENGUE FEVER [None]
  - PAIN [None]
  - URINARY TRACT INFECTION [None]
  - HERPES ZOSTER [None]
